FAERS Safety Report 13757936 (Version 2)
Quarter: 2017Q3

REPORT INFORMATION
  Report Type: Spontaneous
  Country: ES (occurrence: ES)
  Receive Date: 20170717
  Receipt Date: 20170727
  Transmission Date: 20171127
  Serious: No
  Sender: FDA-Public Use
  Company Number: ES-009507513-1707ESP003584

PATIENT
  Age: 72 Year
  Sex: Male

DRUGS (1)
  1. NASONEX [Suspect]
     Active Substance: MOMETASONE FUROATE
     Indication: EXCESSIVE CERUMEN PRODUCTION
     Dosage: UNK
     Route: 001
     Dates: start: 201706, end: 2017

REACTIONS (4)
  - Product use in unapproved indication [Unknown]
  - No adverse event [Unknown]
  - Drug prescribing error [Unknown]
  - Incorrect route of drug administration [Unknown]

NARRATIVE: CASE EVENT DATE: 201706
